FAERS Safety Report 4828545-0 (Version None)
Quarter: 2005Q4

REPORT INFORMATION
  Report Type: 
  Country: None (occurrence: None)
  Receive Date: 20051110
  Receipt Date: 20051101
  Transmission Date: 20060501
  Serious: Yes (Hospitalization)
  Sender: FDA-Public Use
  Company Number: 2005122212

PATIENT
  Age: 81 Year
  Sex: Male

DRUGS (1)
  1. LIPITOR [Suspect]
     Indication: BLOOD CHOLESTEROL
     Dosage: DAILY

REACTIONS (5)
  - ASTHENIA [None]
  - FATIGUE [None]
  - MOVEMENT DISORDER [None]
  - SLEEP DISORDER [None]
  - WALKING AID USER [None]
